FAERS Safety Report 16221626 (Version 1)
Quarter: 2019Q2

REPORT INFORMATION
  Report Type: Spontaneous
  Country: CA (occurrence: CA)
  Receive Date: 20190422
  Receipt Date: 20190422
  Transmission Date: 20190711
  Serious: Yes (Other)
  Sender: FDA-Public Use
  Company Number: CA-TEVA-2019-CA-1039637

PATIENT
  Age: 67 Year
  Sex: Male

DRUGS (9)
  1. BISOPROLOL [Concomitant]
     Active Substance: BISOPROLOL
  2. DOCETAXEL. [Concomitant]
     Active Substance: DOCETAXEL
  3. DEXAMETHASONE. [Suspect]
     Active Substance: DEXAMETHASONE
     Indication: PREMEDICATION
     Dosage: 16 MILLIGRAM DAILY;
     Route: 048
  4. FIRMAGON [Concomitant]
     Active Substance: DEGARELIX ACETATE
  5. TAMSULOSIN CR [Concomitant]
     Active Substance: TAMSULOSIN
  6. ASA [Concomitant]
     Active Substance: ASPIRIN
  7. VITAMIN D2 [Concomitant]
     Active Substance: ERGOCALCIFEROL
  8. DEXAMETHASONE. [Suspect]
     Active Substance: DEXAMETHASONE
     Indication: FLUID RETENTION
  9. PRAVASTATIN SODIUM. [Concomitant]
     Active Substance: PRAVASTATIN SODIUM

REACTIONS (2)
  - Hypertension [Unknown]
  - Chest pain [Unknown]
